FAERS Safety Report 15103118 (Version 1)
Quarter: 2018Q3

REPORT INFORMATION
  Report Type: Spontaneous
  Country: AR (occurrence: AR)
  Receive Date: 20180703
  Receipt Date: 20180703
  Transmission Date: 20181010
  Serious: Yes (Other)
  Sender: FDA-Public Use
  Company Number: AR-BAYER-2018-120732

PATIENT
  Age: 81 Year
  Sex: Male

DRUGS (1)
  1. ASPIRINETAS 100 MG [Suspect]
     Active Substance: ASPIRIN
     Dosage: UNK
     Dates: start: 2008

REACTIONS (4)
  - Pruritus [Not Recovered/Not Resolved]
  - Neuropathy peripheral [Not Recovered/Not Resolved]
  - Dry skin [Not Recovered/Not Resolved]
  - Urticaria [Not Recovered/Not Resolved]

NARRATIVE: CASE EVENT DATE: 2011
